FAERS Safety Report 8189998-6 (Version None)
Quarter: 2012Q1

REPORT INFORMATION
  Report Type: 
  Country: None (occurrence: None)
  Receive Date: 20120307
  Receipt Date: 20120223
  Transmission Date: 20120608
  Serious: Yes (Life-Threatening, Hospitalization)
  Sender: FDA-Public Use
  Company Number: US-BAYER-2012-021716

PATIENT
  Age: 43 Year
  Sex: Male

DRUGS (3)
  1. HEART MEDICATION [Concomitant]
  2. ASPIRIN [Suspect]
     Indication: ISCHAEMIC HEART DISEASE PROPHYLAXIS
     Dosage: UNK
     Dates: start: 20110722
  3. CALCIUM CARBONATE [Concomitant]

REACTIONS (1)
  - MYOCARDIAL INFARCTION [None]
